FAERS Safety Report 4614059-X (Version None)
Quarter: 2005Q1

REPORT INFORMATION
  Report Type: 
  Country: None (occurrence: None)
  Receive Date: 20050316
  Receipt Date: 20050302
  Transmission Date: 20050727
  Serious: Yes (Hospitalization)
  Sender: FDA-Public Use
  Company Number: DSA_26046_2005

PATIENT
  Age: 96 Year
  Sex: Female

DRUGS (6)
  1. LORAZEPAM [Suspect]
  2. ARTHROTEC [Suspect]
     Dates: start: 20050117, end: 20050124
  3. STABLON [Suspect]
  4. IMOVANE [Concomitant]
  5. TRIATEC [Concomitant]
  6. DAFALGAN [Concomitant]

REACTIONS (2)
  - FALL [None]
  - LOWER LIMB FRACTURE [None]
